FAERS Safety Report 9548689 (Version 4)
Quarter: 2014Q2

REPORT INFORMATION
  Report Type: Spontaneous
  Country: US (occurrence: None)
  Receive Date: 20130919
  Receipt Date: 20140505
  Transmission Date: 20141212
  Serious: Yes (Other)
  Sender: FDA-Public Use
  Company Number: 2013-US-000320

PATIENT
  Age: 27 Year
  Sex: Male

DRUGS (2)
  1. XYREM [Suspect]
     Indication: CATAPLEXY
     Dosage: 2.25G BID FOR 1WK, 3G BID FOR 1WK, 3.75G BID FOR 1WK, 4.5G BID, ORAL
     Route: 048
     Dates: start: 20120523, end: 2012
  2. XYREM [Suspect]
     Indication: NARCOLEPSY
     Dosage: 2.25G BID FOR 1WK, 3G BID FOR 1WK, 3.75G BID FOR 1WK, 4.5G BID, ORAL
     Route: 048
     Dates: start: 20120523, end: 2012

REACTIONS (6)
  - Insomnia [None]
  - Convulsion [None]
  - Anxiety [None]
  - Product quality issue [None]
  - Wrong technique in drug usage process [None]
  - Drug ineffective [None]
